FAERS Safety Report 25277781 (Version 1)
Quarter: 2025Q2

REPORT INFORMATION
  Report Type: Spontaneous
  Country: US (occurrence: None)
  Receive Date: 20250506
  Receipt Date: 20250506
  Transmission Date: 20250717
  Serious: Yes (Other)
  Sender: FDA-CTU
  Company Number: None

PATIENT
  Age: 67 Year
  Sex: Female

DRUGS (3)
  1. ENBREL [Suspect]
     Active Substance: ETANERCEPT
  2. TREMFYA [Suspect]
     Active Substance: GUSELKUMAB
  3. ERBITUX [Suspect]
     Active Substance: CETUXIMAB

REACTIONS (3)
  - Plasma cell myeloma [None]
  - Skin squamous cell carcinoma metastatic [None]
  - Metastases to lymph nodes [None]
